FAERS Safety Report 7958854-8 (Version None)
Quarter: 2011Q4

REPORT INFORMATION
  Report Type: 
  Country: None (occurrence: None)
  Receive Date: 20111206
  Receipt Date: 20111130
  Transmission Date: 20120403
  Serious: Yes (Hospitalization)
  Sender: FDA-Public Use
  Company Number: RS-BRISTOL-MYERS SQUIBB COMPANY-15338775

PATIENT
  Sex: Male

DRUGS (1)
  1. GLUCOPHAGE [Suspect]
     Indication: DIABETES MELLITUS
     Dosage: 1 DF = 1+1/2+1/2 1000MG TABS BEFORE EVERY MEALS TAKEN SINCE 1.5 YRS 1/2 TAB/DAY(500MG,1 IN 1 D)
     Route: 048

REACTIONS (2)
  - ANGINA PECTORIS [None]
  - ASTHENIA [None]
